FAERS Safety Report 12718432 (Version 1)
Quarter: 2016Q3

REPORT INFORMATION
  Report Type: Not Available
  Country: None (occurrence: US)
  Receive Date: 20160906
  Receipt Date: 20160906
  Transmission Date: 20161109
  Serious: No
  Sender: FDA-Public Use
  Company Number: US-AKORN-21958

PATIENT
  Sex: Female

DRUGS (1)
  1. ERYTHROMYCIN OPHTHALMIC OINTMENT USP, 0.5% [Suspect]
     Active Substance: ERYTHROMYCIN

REACTIONS (1)
  - Vision blurred [Unknown]

NARRATIVE: CASE EVENT DATE: 20151228
